FAERS Safety Report 4314498-0 (Version None)
Quarter: 2004Q1

REPORT INFORMATION
  Report Type: 
  Country: None (occurrence: None)
  Receive Date: 20040309
  Receipt Date: 20030905
  Transmission Date: 20041129
  Serious: Yes (Hospitalization)
  Sender: FDA-Public Use
  Company Number: FR-ROCHE-346272

PATIENT
  Age: 48 Year
  Sex: Male
  Weight: 79 kg

DRUGS (10)
  1. ENFUVIRTIDE [Suspect]
     Indication: HIV INFECTION
     Route: 058
     Dates: start: 20030113, end: 20030904
  2. EPIVIR [Concomitant]
     Dates: start: 20030113, end: 20030906
  3. ATAZANAVIR SULFATE [Concomitant]
     Dates: start: 20030113, end: 20030906
  4. DIAMICRON [Concomitant]
     Dosage: TDD REPORTED AS 2 PER DAY.
  5. NEUPOGEN [Concomitant]
  6. LIPANTHYL [Concomitant]
     Dosage: TDD REPORTED AS 200.
  7. AVLOCARDYL [Concomitant]
  8. AZADOSE [Concomitant]
     Dosage: ADMINISTERED FOR MORE THAN ONE YEAR.
  9. PENTACARINAT [Concomitant]
  10. VALCYTE [Concomitant]
     Dosage: TRADENAME REPORTED AS ROVALCYTE.

REACTIONS (7)
  - ASPERGILLOSIS [None]
  - COUGH [None]
  - DYSPNOEA [None]
  - LUNG DISORDER [None]
  - PRODUCTIVE COUGH [None]
  - PURULENCE [None]
  - PYREXIA [None]
